FAERS Safety Report 7685261-8 (Version None)
Quarter: 2011Q3

REPORT INFORMATION
  Report Type: 
  Country: None (occurrence: None)
  Receive Date: 20110816
  Receipt Date: 20110808
  Transmission Date: 20111222
  Serious: Yes (Hospitalization, Other)
  Sender: FDA-Public Use
  Company Number: US-ELI_LILLY_AND_COMPANY-US201108002559

PATIENT
  Sex: Female

DRUGS (6)
  1. BYETTA [Suspect]
     Dosage: 5 UG, BID
  2. GLUMETZA [Concomitant]
  3. JANUVIA [Concomitant]
     Dosage: 100 MG, UNK
  4. CRESTOR [Concomitant]
  5. ASPIRIN [Concomitant]
  6. LISINOPRIL [Concomitant]

REACTIONS (2)
  - PANCREATIC PSEUDOCYST [None]
  - PANCREATITIS ACUTE [None]
